FAERS Safety Report 9351727 (Version 1)
Quarter: 2013Q2

REPORT INFORMATION
  Report Type: Spontaneous
  Country: US (occurrence: US)
  Receive Date: 20130617
  Receipt Date: 20130617
  Transmission Date: 20140414
  Serious: Yes (Other)
  Sender: FDA-Public Use
  Company Number: US-UPSHER-SMITH LABORATORIES, INC.-12002243

PATIENT
  Age: 90 Year
  Sex: Male

DRUGS (5)
  1. PACERONE (USL) [Suspect]
     Indication: MYOCARDIAL INFARCTION
     Dosage: 200 MG, QD
     Route: 048
     Dates: start: 1997, end: 201203
  2. DILTIAZEM [Concomitant]
     Dosage: UNK
  3. DIGOXIN [Concomitant]
     Dosage: UNK
  4. ZOCOR [Concomitant]
     Dosage: UNK
  5. LEVOTHYROXINE [Concomitant]
     Dosage: UNK

REACTIONS (3)
  - Pulmonary toxicity [Not Recovered/Not Resolved]
  - Dyspnoea [Not Recovered/Not Resolved]
  - Asthenia [Not Recovered/Not Resolved]
